FAERS Safety Report 9091888 (Version 1)
Quarter: 2013Q1

REPORT INFORMATION
  Report Type: Report from Study
  Country: US (occurrence: US)
  Receive Date: 20130131
  Receipt Date: 20130131
  Transmission Date: 20140127
  Serious: No
  Sender: FDA-Public Use
  Company Number: US-ABBOTT-12P-163-0992831-00

PATIENT
  Age: 41 Year
  Sex: Male

DRUGS (5)
  1. HUMIRA [Suspect]
     Indication: CROHN^S DISEASE
     Dates: start: 201208
  2. ADVAIR [Concomitant]
     Indication: HYPERSENSITIVITY
  3. ADVAIR [Concomitant]
     Indication: ASTHMA
  4. NASONEX [Concomitant]
     Indication: HYPERSENSITIVITY
  5. NASONEX [Concomitant]
     Indication: ASTHMA

REACTIONS (2)
  - Crohn^s disease [Not Recovered/Not Resolved]
  - Wrong technique in drug usage process [Unknown]
